FAERS Safety Report 15499333 (Version 1)
Quarter: 2018Q4

REPORT INFORMATION
  Report Type: Spontaneous
  Country: US (occurrence: US)
  Receive Date: 20181009
  Receipt Date: 20181009
  Transmission Date: 20190205
  Serious: No
  Sender: FDA-Public Use
  Company Number: None

PATIENT
  Age: 61 Year
  Sex: Male

DRUGS (2)
  1. TALTZ [Suspect]
     Active Substance: IXEKIZUMAB
     Indication: PSORIASIS
     Dosage: INJECT 160MG (2 PENS) SUBCUTANEOUSL Y AT WEEK 0 THEN?80MG (1 PEN) SUBCUTANEOUSLY EVERY 4 WEEKS?
     Route: 058
     Dates: start: 201807
  2. TALTZ [Suspect]
     Active Substance: IXEKIZUMAB
     Indication: PSORIATIC ARTHROPATHY
     Dosage: INJECT 160MG (2 PENS) SUBCUTANEOUSL Y AT WEEK 0 THEN?80MG (1 PEN) SUBCUTANEOUSLY EVERY 4 WEEKS?
     Route: 058
     Dates: start: 201807

REACTIONS (2)
  - Upper respiratory tract infection [None]
  - Product dose omission [None]
